FAERS Safety Report 21123006 (Version 1)
Quarter: 2022Q3

REPORT INFORMATION
  Report Type: Spontaneous
  Country: US (occurrence: None)
  Receive Date: 20220724
  Receipt Date: 20220724
  Transmission Date: 20221027
  Serious: No
  Sender: FDA-Public Use
  Company Number: 2022A253317

PATIENT
  Age: 899 Month
  Sex: Male

DRUGS (3)
  1. FARXIGA [Suspect]
     Active Substance: DAPAGLIFLOZIN PROPANEDIOL
     Indication: Type 2 diabetes mellitus
     Route: 048
     Dates: start: 202106, end: 202112
  2. METFORMIN [Concomitant]
     Active Substance: METFORMIN HYDROCHLORIDE
     Dosage: TWICE A DAY
  3. TARCEVA [Concomitant]
     Active Substance: ERLOTINIB HYDROCHLORIDE
     Dosage: TWICE A DAY

REACTIONS (3)
  - Scab [Not Recovered/Not Resolved]
  - Skin erosion [Not Recovered/Not Resolved]
  - Eczema [Not Recovered/Not Resolved]

NARRATIVE: CASE EVENT DATE: 20211201
